FAERS Safety Report 16096501 (Version 2)
Quarter: 2019Q2

REPORT INFORMATION
  Report Type: Spontaneous
  Country: US (occurrence: US)
  Receive Date: 20190320
  Receipt Date: 20190409
  Transmission Date: 20190711
  Serious: No
  Sender: FDA-Public Use
  Company Number: US-SUNOVION-2019SUN001101

PATIENT
  Sex: Female

DRUGS (1)
  1. LATUDA [Suspect]
     Active Substance: LURASIDONE HYDROCHLORIDE
     Indication: BIPOLAR DISORDER
     Dosage: 20 MG, QD
     Route: 048

REACTIONS (10)
  - Irritability [Unknown]
  - Dyspepsia [Unknown]
  - Emotional disorder [Unknown]
  - Fall [Unknown]
  - Anger [Unknown]
  - Diplopia [Unknown]
  - Feeling abnormal [Unknown]
  - Vertigo [Unknown]
  - Intentional product misuse [Unknown]
  - Wrong technique in product usage process [Unknown]
